FAERS Safety Report 8300801-3 (Version None)
Quarter: 2012Q2

REPORT INFORMATION
  Report Type: 
  Country: None (occurrence: None)
  Receive Date: 20120420
  Receipt Date: 20120418
  Transmission Date: 20120825
  Serious: Yes (Hospitalization, Other)
  Sender: FDA-Public Use
  Company Number: PHHY2012IL026406

PATIENT
  Age: 51 Year
  Sex: Female

DRUGS (2)
  1. LORASTINE [Concomitant]
     Dosage: 10 MG, QD
  2. LAMISIL [Suspect]
     Indication: FUNGAL INFECTION
     Dosage: 250 MG
     Route: 048
     Dates: start: 20050901

REACTIONS (39)
  - PAIN [None]
  - PSORIASIS [None]
  - OBSESSIVE THOUGHTS [None]
  - GASTROINTESTINAL DISORDER [None]
  - SKIN LESION [None]
  - HYPERSENSITIVITY [None]
  - ANGIOEDEMA [None]
  - SWELLING FACE [None]
  - INCONTINENCE [None]
  - FATIGUE [None]
  - POST-TRAUMATIC STRESS DISORDER [None]
  - MENTAL DISORDER [None]
  - EYE SWELLING [None]
  - DYSPEPSIA [None]
  - SOMNOLENCE [None]
  - BURNING SENSATION [None]
  - ASPHYXIA [None]
  - PRURITUS [None]
  - ERYTHEMA [None]
  - SEXUAL DYSFUNCTION [None]
  - VOMITING [None]
  - PERIPHERAL NERVE INJURY [None]
  - EYE INJURY [None]
  - HEPATIC ENZYME INCREASED [None]
  - ANXIETY [None]
  - MUCOUS MEMBRANE DISORDER [None]
  - URTICARIA [None]
  - SKIN OEDEMA [None]
  - SKIN HYPERPIGMENTATION [None]
  - GENERALISED OEDEMA [None]
  - OEDEMA PERIPHERAL [None]
  - GASTROOESOPHAGEAL REFLUX DISEASE [None]
  - NAUSEA [None]
  - FIBROMYALGIA [None]
  - COUGH [None]
  - DYSPHAGIA [None]
  - VISUAL IMPAIRMENT [None]
  - ASTHMA [None]
  - RASH GENERALISED [None]
